FAERS Safety Report 5332918-X (Version None)
Quarter: 2007Q2

REPORT INFORMATION
  Report Type: 
  Country: None (occurrence: None)
  Receive Date: 20070521
  Receipt Date: 20070511
  Transmission Date: 20071010
  Serious: Yes (Hospitalization)
  Sender: FDA-Public Use
  Company Number: 2007BI008702

PATIENT
  Age: 60 Year
  Sex: Female
  Weight: 54.4316 kg

DRUGS (6)
  1. NATALIZUMAB [Suspect]
     Indication: MULTIPLE SCLEROSIS
     Dosage: 300 MG;QM; IV
     Route: 042
  2. NATALIZUMAB [Suspect]
     Indication: MULTIPLE SCLEROSIS
     Dosage: 300 MG;QM; IV
     Route: 042
     Dates: start: 20070101
  3. ZOLOFT [Concomitant]
  4. NEURONTIN [Concomitant]
  5. LAMICTAL [Concomitant]
  6. PROVIGIL [Concomitant]

REACTIONS (6)
  - COORDINATION ABNORMAL [None]
  - DIARRHOEA [None]
  - FALL [None]
  - PAIN [None]
  - UPPER LIMB FRACTURE [None]
  - VOMITING [None]
